FAERS Safety Report 23630826 (Version 2)
Quarter: 2025Q2

REPORT INFORMATION
  Report Type: Report from Study
  Country: IT (occurrence: IT)
  Receive Date: 20240314
  Receipt Date: 20250505
  Transmission Date: 20250717
  Serious: Yes (Other)
  Sender: AUROBINDO
  Company Number: IT-002147023-NVSC2023IT147472

PATIENT
  Age: 13 Year
  Sex: Female

DRUGS (1)
  1. FINGOLIMOD [Suspect]
     Active Substance: FINGOLIMOD
     Indication: Clinically isolated syndrome
     Dosage: 0.5 MILLIGRAM, ONCE A DAY
     Route: 048

REACTIONS (1)
  - Clinically isolated syndrome [Unknown]
